FAERS Safety Report 8201281-9 (Version None)
Quarter: 2012Q1

REPORT INFORMATION
  Report Type: 
  Country: None (occurrence: None)
  Receive Date: 20120312
  Receipt Date: 20120308
  Transmission Date: 20120608
  Serious: Yes (Hospitalization, Other)
  Sender: FDA-Public Use
  Company Number: PHHY2012BR008541

PATIENT
  Sex: Female

DRUGS (4)
  1. DIOVAN [Suspect]
     Dosage: 160 MG, ONE TABLET DAILY
     Dates: start: 20100101
  2. COAL MEDICATION [Concomitant]
     Dosage: UNK UKN, UNK
  3. ANTIHYPERTENSIVE DRUGS [Concomitant]
     Dosage: UNK UKN, UNK
  4. DIOVAN [Suspect]
     Indication: HYPERTENSION
     Dosage: 320 MG, ONE TABLET DAILY

REACTIONS (12)
  - ULCER [None]
  - CONDITION AGGRAVATED [None]
  - OSTEOPOROSIS [None]
  - FLUID RETENTION [None]
  - WOUND [None]
  - ARTHRALGIA [None]
  - ERYTHEMA [None]
  - SKIN ULCER [None]
  - OEDEMA PERIPHERAL [None]
  - HYPERTENSION [None]
  - GLAUCOMA [None]
  - PRURITUS [None]
